FAERS Safety Report 20323834 (Version 1)
Quarter: 2022Q1

REPORT INFORMATION
  Report Type: Report from Study
  Country: CN (occurrence: CN)
  Receive Date: 20220111
  Receipt Date: 20220111
  Transmission Date: 20220423
  Serious: Yes (Other)
  Sender: FDA-Public Use
  Company Number: CN-BRISTOL-MYERS SQUIBB COMPANY-BMS-2022-001557

PATIENT
  Age: 58 Year
  Sex: Male

DRUGS (1)
  1. NIVOLUMAB [Suspect]
     Active Substance: NIVOLUMAB
     Indication: Gastric cancer
     Dosage: 240 MILLIGRAM, Q3WK
     Route: 041
     Dates: start: 20211026

REACTIONS (3)
  - Ascites [Unknown]
  - Discomfort [Unknown]
  - Off label use [Unknown]
